FAERS Safety Report 4807682-0 (Version None)
Quarter: 2005Q4

REPORT INFORMATION
  Report Type: 
  Country: None (occurrence: None)
  Receive Date: 20051024
  Receipt Date: 20050901
  Transmission Date: 20060501
  Serious: Yes (Hospitalization, Other)
  Sender: FDA-Public Use
  Company Number: PHNR2005AU01341

PATIENT
  Age: 36 Year
  Sex: Male
  Weight: 86 kg

DRUGS (17)
  1. MYCOPHENOLATE MOFETIL [Concomitant]
     Dosage: 1 G, BID
  2. VALPROATE SODIUM [Concomitant]
     Indication: CONVULSION
     Dosage: 600 MG, BID
  3. DILTIAZEM [Concomitant]
     Dosage: 240 MG, QD
  4. IRBESARTAN [Concomitant]
     Dosage: 300 MG, QD
  5. FAMOTIDINE [Concomitant]
     Dosage: 20 MG, BID
  6. SODIUM BICARBONATE [Concomitant]
     Dosage: 840 MG, BID
  7. CALCIUM CARBONATE [Concomitant]
     Dosage: 1 UNK, QD
  8. PRAVASTATIN [Concomitant]
     Dosage: 10 MG, QD
  9. PRAZOSIN [Concomitant]
     Dosage: 2 MG, BID (INCREASED)
  10. ARANESP [Concomitant]
     Dosage: 50 UG WEEKLY
  11. PERINDOPRIL [Concomitant]
     Dosage: 4 MG, BID
  12. NEORAL [Suspect]
     Indication: RENAL TRANSPLANT
     Dosage: 125 MG, BID
  13. CALTRATE [Concomitant]
     Dosage: 1 DAILY
  14. PREDNISOLONE [Concomitant]
     Dosage: 10 MG DAILY
  15. SIROLIMUS [Concomitant]
     Dosage: 2MG DAILY
  16. EPOETIN NOS [Concomitant]
  17. AZATHIOPRINE [Concomitant]
     Dates: end: 19960430

REACTIONS (39)
  - ADENOVIRAL CONJUNCTIVITIS [None]
  - ANAEMIA [None]
  - ANGIOPLASTY [None]
  - BACTERIAL SEPSIS [None]
  - BLOOD CREATININE INCREASED [None]
  - CALCIFICATION OF MUSCLE [None]
  - CYTOMEGALOVIRUS INFECTION [None]
  - DRUG TOXICITY [None]
  - FATIGUE [None]
  - GINGIVAL HYPERTROPHY [None]
  - GRAFT INFECTION [None]
  - HAEMODIALYSIS [None]
  - HAEMOGLOBIN DECREASED [None]
  - HIP ARTHROPLASTY [None]
  - HYPERTENSION [None]
  - KIDNEY TRANSPLANT REJECTION [None]
  - MALAISE [None]
  - MYOCARDIAL INFARCTION [None]
  - NEPHRECTOMY [None]
  - NEPHROPATHY [None]
  - NEPHROSTOMY [None]
  - OEDEMA [None]
  - OSTEONECROSIS [None]
  - PYREXIA [None]
  - RENAL FAILURE ACUTE [None]
  - RENAL IMPAIRMENT [None]
  - RENAL TRANSPLANT [None]
  - RESPIRATORY TRACT INFECTION [None]
  - ROTATOR CUFF SYNDROME [None]
  - STAPHYLOCOCCAL SEPSIS [None]
  - STENT REMOVAL [None]
  - SURGERY [None]
  - URETERIC OBSTRUCTION [None]
  - URETERIC REPAIR [None]
  - URETERIC STENOSIS [None]
  - URINARY TRACT INFECTION BACTERIAL [None]
  - VENTRICULAR FAILURE [None]
  - VIRAL UPPER RESPIRATORY TRACT INFECTION [None]
  - WEIGHT DECREASED [None]
